APPROVED DRUG PRODUCT: TRINALIN
Active Ingredient: AZATADINE MALEATE; PSEUDOEPHEDRINE SULFATE
Strength: 1MG;120MG
Dosage Form/Route: TABLET, EXTENDED RELEASE;ORAL
Application: N018506 | Product #001
Applicant: SCHERING CORP SUB SCHERING PLOUGH CORP
Approved: Mar 23, 1982 | RLD: No | RS: No | Type: DISCN